FAERS Safety Report 5802683-8 (Version None)
Quarter: 2008Q3

REPORT INFORMATION
  Report Type: 
  Country: None (occurrence: None)
  Receive Date: 20080702
  Receipt Date: 20080616
  Transmission Date: 20090109
  Serious: Yes (Hospitalization)
  Sender: FDA-Public Use
  Company Number: S08-GER-02218-01

PATIENT
  Age: 71 Year
  Sex: Female

DRUGS (10)
  1. ESCITALOPRAM OXALATE [Suspect]
     Dosage: 15 MG QD PO
     Route: 048
     Dates: start: 20080122, end: 20080130
  2. ESCITALOPRAM OXALATE [Suspect]
     Dosage: 20 MG QD PO
     Route: 048
     Dates: start: 20080131, end: 20080131
  3. ESCITALOPRAM OXALATE [Suspect]
     Dosage: 5 MG QD PO
     Route: 048
     Dates: start: 20080117, end: 20080118
  4. ESCITALOPRAM OXALATE [Suspect]
     Dosage: 10 MG QD PO
     Route: 048
     Dates: start: 20080119, end: 20080121
  5. SEROQUEL [Suspect]
     Dosage: 200 MG QD PO
     Route: 048
     Dates: start: 20080123, end: 20080129
  6. SEROQUEL [Suspect]
     Dates: start: 20080116, end: 20080122
  7. RAMIPRIL [Concomitant]
  8. LORAZEPAM [Concomitant]
  9. HCT HEXAL (HYDROCHLOROTHIAZIDE) [Concomitant]
  10. L-THYROXIN (LEVOTHYROXINE) [Concomitant]

REACTIONS (1)
  - DYSKINESIA [None]
